FAERS Safety Report 5197969-7 (Version None)
Quarter: 2006Q4

REPORT INFORMATION
  Report Type: 
  Country: None (occurrence: None)
  Receive Date: 20061228
  Receipt Date: 20061215
  Transmission Date: 20070319
  Serious: Yes (Hospitalization)
  Sender: FDA-Public Use
  Company Number: 234303

PATIENT
  Sex: Male

DRUGS (2)
  1. AVASTIN [Suspect]
     Indication: PANCREATIC CARCINOMA
  2. GEMCITABINE [Suspect]
     Indication: PANCREATIC CARCINOMA

REACTIONS (1)
  - PERIPHERAL VASCULAR DISORDER [None]
